FAERS Safety Report 5421807-8 (Version None)
Quarter: 2007Q3

REPORT INFORMATION
  Report Type: 
  Country: None (occurrence: None)
  Receive Date: 20070820
  Receipt Date: 20070809
  Transmission Date: 20080115
  Serious: Yes (Death, Life-Threatening, Hospitalization)
  Sender: FDA-Public Use
  Company Number: 150536USA

PATIENT
  Age: 71 Year
  Sex: Male

DRUGS (13)
  1. FLUOROURACIL [Suspect]
     Indication: GASTROOESOPHAGEAL CANCER
     Dosage: CYCLE 1, DAY 1-5 OVER 120 HOURS Q 28 DAYS (1840 MG, 1 IN 1 D) INTRAVENOUS DRIP
     Route: 042
     Dates: start: 20061115, end: 20061120
  2. FLUOROURACIL [Suspect]
     Indication: METASTATIC NEOPLASM
     Dosage: CYCLE 1, DAY 1-5 OVER 120 HOURS Q 28 DAYS (1840 MG, 1 IN 1 D) INTRAVENOUS DRIP
     Route: 042
     Dates: start: 20061115, end: 20061120
  3. CISPLATIN [Suspect]
     Dosage: 6.5714 MG (184 MG, 1 IN 28 D), INTRAVENOUS (NOT OTHERWISE SPECIFIED)
     Route: 042
     Dates: start: 20061115, end: 20061115
  4. LISINOPRIL [Concomitant]
  5. METFORMIN HCL [Concomitant]
  6. PROPACET 100 [Concomitant]
  7. LOPERAMIDE HYDROCHLORIDE [Concomitant]
  8. LOMOTIL [Concomitant]
  9. ONDANSETRON [Concomitant]
  10. XYLOXYLIN [Concomitant]
  11. PROCHLORPERAZINE EDISYLATE [Concomitant]
  12. SUCRALFATE [Concomitant]
  13. ESOMEPRAZOLE MAGNESIUM [Concomitant]

REACTIONS (23)
  - ACIDOSIS [None]
  - ALPHA HAEMOLYTIC STREPTOCOCCAL INFECTION [None]
  - ATELECTASIS [None]
  - BACTERIAL INFECTION [None]
  - BLOOD CULTURE POSITIVE [None]
  - ESCHERICHIA INFECTION [None]
  - GASTROINTESTINAL HAEMORRHAGE [None]
  - GASTROINTESTINAL ISCHAEMIA [None]
  - HYPOTENSION [None]
  - INTESTINAL INFARCTION [None]
  - INTESTINAL ISCHAEMIA [None]
  - INTESTINAL PERFORATION [None]
  - LACTIC ACIDOSIS [None]
  - MULTI-ORGAN FAILURE [None]
  - PLEURAL EFFUSION [None]
  - RESPIRATORY DISTRESS [None]
  - SALMONELLOSIS [None]
  - SEPSIS [None]
  - SHOCK [None]
  - SMALL INTESTINAL OBSTRUCTION [None]
  - STAPHYLOCOCCAL INFECTION [None]
  - TUMOUR HAEMORRHAGE [None]
  - VENOUS THROMBOSIS [None]
